FAERS Safety Report 13279698 (Version 1)
Quarter: 2017Q1

REPORT INFORMATION
  Report Type: Spontaneous
  Country: US (occurrence: US)
  Receive Date: 20170228
  Receipt Date: 20170228
  Transmission Date: 20170428
  Serious: Yes (Other)
  Sender: FDA-Public Use
  Company Number: None

PATIENT
  Age: 9 Year
  Sex: Female
  Weight: 30.6 kg

DRUGS (1)
  1. MIRALAX [Suspect]
     Active Substance: POLYETHYLENE GLYCOL 3350
     Indication: CONSTIPATION
     Dosage: 2 CAPFULS TWICE A DAY; ORAL
     Route: 048
     Dates: start: 20170119, end: 20170228

REACTIONS (3)
  - Anxiety [None]
  - Suicidal ideation [None]
  - Feeling abnormal [None]

NARRATIVE: CASE EVENT DATE: 20170119
